FAERS Safety Report 18253767 (Version 4)
Quarter: 2020Q4

REPORT INFORMATION
  Report Type: Report from Study
  Country: US (occurrence: US)
  Receive Date: 20200910
  Receipt Date: 20201126
  Transmission Date: 20210113
  Serious: No
  Sender: FDA-Public Use
  Company Number: US-ALLERGAN-2033808US

PATIENT
  Age: 40 Year
  Sex: Male
  Weight: 149.7 kg

DRUGS (3)
  1. BLINDED CARIPRAZINE HCL 3MG CAP (TBD) [Suspect]
     Active Substance: CARIPRAZINE HYDROCHLORIDE
     Indication: SCHIZOPHRENIA
     Dosage: UNK
     Dates: start: 20200215, end: 20200813
  2. BLINDED CARIPRAZINE HCL 4.5MG CAP (TBD) [Suspect]
     Active Substance: CARIPRAZINE HYDROCHLORIDE
     Indication: SCHIZOPHRENIA
     Dosage: UNK
     Dates: start: 20200215, end: 20200813
  3. PLACEBO [Suspect]
     Active Substance: UNSPECIFIED INGREDIENT
     Indication: SCHIZOPHRENIA
     Dosage: UNK
     Dates: start: 20200215, end: 20200813

REACTIONS (2)
  - Lenticular opacities [Recovered/Resolved]
  - Visual acuity reduced [Recovered/Resolved]

NARRATIVE: CASE EVENT DATE: 20200814
